FAERS Safety Report 9214844 (Version 1)
Quarter: 2013Q2

REPORT INFORMATION
  Report Type: Spontaneous
  Country: US (occurrence: US)
  Receive Date: 20130405
  Receipt Date: 20130405
  Transmission Date: 20140414
  Serious: Yes (Other)
  Sender: FDA-Public Use
  Company Number: CHPA2013US005870

PATIENT
  Age: 74 Year
  Sex: Female

DRUGS (3)
  1. VOLTAREN GEL [Suspect]
     Indication: JOINT SWELLING
     Dosage: A LITTLE BIT
     Route: 061
  2. VOLTAREN GEL [Suspect]
     Indication: JOINT SWELLING
  3. VOLTAREN GEL [Suspect]
     Indication: OEDEMA PERIPHERAL

REACTIONS (2)
  - Rectal haemorrhage [Not Recovered/Not Resolved]
  - Off label use [Unknown]
